FAERS Safety Report 5706111-2 (Version None)
Quarter: 2008Q2

REPORT INFORMATION
  Report Type: 
  Country: None (occurrence: None)
  Receive Date: 20080415
  Receipt Date: 20080407
  Transmission Date: 20081010
  Serious: Yes (Death)
  Sender: FDA-Public Use
  Company Number: US-GENENTECH-258977

PATIENT
  Age: 41 Year
  Sex: Female

DRUGS (2)
  1. AVASTIN [Suspect]
     Indication: COLORECTAL CANCER METASTATIC
     Dosage: UNK, UNKNOWN
     Route: 065
     Dates: end: 20060101
  2. CHEMOTHERAPY (UNK INGREDIENTS) [Concomitant]
     Indication: COLORECTAL CANCER METASTATIC

REACTIONS (2)
  - DRUG TOXICITY [None]
  - HEPATIC FAILURE [None]
